FAERS Safety Report 10639639 (Version 1)
Quarter: 2014Q4

REPORT INFORMATION
  Report Type: Spontaneous
  Country: US (occurrence: US)
  Receive Date: 20141209
  Receipt Date: 20141209
  Transmission Date: 20150529
  Serious: Yes (Other)
  Sender: FDA-Public Use
  Company Number: US-GLENMARK GENERICS INC.-2014GMK012326

PATIENT
  Age: 34 Year
  Sex: Female

DRUGS (5)
  1. CALCIUM + VITAMIN D                /01483701/ [Concomitant]
     Active Substance: CALCIUM\VITAMIN D
     Indication: SUPPLEMENTATION THERAPY
     Dosage: UNK
     Dates: start: 20141023
  2. NORETHINDRONE. [Suspect]
     Active Substance: NORETHINDRONE
     Indication: ENDOMETRIOSIS
     Dosage: 5 MG, QD
     Dates: start: 20141023
  3. LUPRON [Suspect]
     Active Substance: LEUPROLIDE ACETATE
     Dosage: 11.25 MG / 3 MONTHS
     Dates: start: 20141023
  4. MELATONIN [Concomitant]
     Active Substance: MELATONIN
     Indication: SLEEP DISORDER
     Dosage: 5 MG, PRN
  5. LUPRON [Suspect]
     Active Substance: LEUPROLIDE ACETATE
     Indication: ENDOMETRIOSIS
     Dosage: UNK
     Dates: start: 1997

REACTIONS (8)
  - Amnesia [Not Recovered/Not Resolved]
  - Headache [Not Recovered/Not Resolved]
  - Weight increased [Not Recovered/Not Resolved]
  - Migraine with aura [Not Recovered/Not Resolved]
  - Vomiting [Not Recovered/Not Resolved]
  - Menorrhagia [Recovered/Resolved]
  - Constipation [Not Recovered/Not Resolved]
  - Nausea [Not Recovered/Not Resolved]

NARRATIVE: CASE EVENT DATE: 2014
